FAERS Safety Report 14169398 (Version 1)
Quarter: 2017Q4

REPORT INFORMATION
  Report Type: Report from Study
  Country: None (occurrence: GR)
  Receive Date: 20171107
  Receipt Date: 20171107
  Transmission Date: 20180321
  Serious: Yes (Hospitalization)
  Sender: FDA-Public Use
  Company Number: GR-ABBVIE-17P-066-2151214-00

PATIENT
  Age: 66 Year
  Sex: Female
  Weight: 38 kg

DRUGS (7)
  1. VENETOCLAX. [Suspect]
     Active Substance: VENETOCLAX
     Indication: MANTLE CELL LYMPHOMA
     Route: 048
     Dates: start: 201707, end: 20171030
  2. FUNGUSTATIN (FLUCONAZOLE) [Concomitant]
     Indication: PRODUCT USED FOR UNKNOWN INDICATION
  3. VALTREX (VALACYCLOVIR) [Concomitant]
     Indication: PRODUCT USED FOR UNKNOWN INDICATION
  4. BACTRIMEL (SULFAMETHOXAZOLE AND TRIMETHOPRIM) [Concomitant]
     Indication: PRODUCT USED FOR UNKNOWN INDICATION
  5. VENETOCLAX. [Suspect]
     Active Substance: VENETOCLAX
     Route: 048
     Dates: start: 20171102
  6. VENETOCLAX. [Suspect]
     Active Substance: VENETOCLAX
     Route: 048
     Dates: start: 20171031, end: 20171101
  7. CLEXANE (ENOXAPARIN) [Concomitant]
     Indication: PRODUCT USED FOR UNKNOWN INDICATION

REACTIONS (7)
  - Oedema peripheral [Not Recovered/Not Resolved]
  - Blood lactate dehydrogenase increased [Not Recovered/Not Resolved]
  - Mass [Not Recovered/Not Resolved]
  - Pain [Not Recovered/Not Resolved]
  - Emotional distress [Not Recovered/Not Resolved]
  - Disease progression [Not Recovered/Not Resolved]
  - Weight decreased [Not Recovered/Not Resolved]

NARRATIVE: CASE EVENT DATE: 20171030
